FAERS Safety Report 19092437 (Version 1)
Quarter: 2021Q2

REPORT INFORMATION
  Report Type: Spontaneous
  Country: EG (occurrence: EG)
  Receive Date: 20210405
  Receipt Date: 20210405
  Transmission Date: 20210717
  Serious: Yes (Other)
  Sender: FDA-Public Use
  Company Number: EG-HIKMA PHARMACEUTICALS USA INC.-EG-H14001-21-01571

PATIENT
  Age: 58 Year
  Sex: Female

DRUGS (4)
  1. CARBOPLATIN. [Suspect]
     Active Substance: CARBOPLATIN
     Indication: UTERINE CANCER
     Route: 041
  2. CARBOPLATIN. [Suspect]
     Active Substance: CARBOPLATIN
     Indication: OVARIAN CANCER
     Route: 041
     Dates: start: 20210131
  3. UNITAXEL [Suspect]
     Active Substance: PACLITAXEL
     Indication: UTERINE CANCER
     Route: 041
  4. UNITAXEL [Suspect]
     Active Substance: PACLITAXEL
     Indication: OVARIAN CANCER
     Route: 041
     Dates: start: 20210131

REACTIONS (7)
  - Dyspnoea [Unknown]
  - Condition aggravated [Unknown]
  - Vomiting [Unknown]
  - Ascites [Unknown]
  - Headache [Unknown]
  - Pain [Unknown]
  - Hypoaesthesia [Unknown]
